FAERS Safety Report 7986569-9 (Version None)
Quarter: 2011Q4

REPORT INFORMATION
  Report Type: 
  Country: None (occurrence: None)
  Receive Date: 20111216
  Receipt Date: 20110725
  Transmission Date: 20120403
  Serious: No
  Sender: FDA-Public Use
  Company Number: US-BRISTOL-MYERS SQUIBB COMPANY-15921448

PATIENT
  Age: 49 Year
  Sex: Female

DRUGS (3)
  1. ABILIFY [Suspect]
     Indication: DEPRESSION
     Dosage: INITIALLY GIVEN 1 MG,THEN INCREASED TO 5 MG
  2. VALIUM [Suspect]
  3. CYMBALTA [Suspect]

REACTIONS (1)
  - OBSESSIVE-COMPULSIVE DISORDER [None]
